FAERS Safety Report 8865618 (Version 1)
Quarter: 2012Q4

REPORT INFORMATION
  Report Type: 
  Country: US (occurrence: US)
  Receive Date: 20121024
  Receipt Date: 20121024
  Transmission Date: 20130627
  Serious: No
  Sender: FDA-Public Use
  Company Number: US-AMGEN-USASP2012003979

PATIENT
  Age: 44 Year
  Sex: Female

DRUGS (4)
  1. ENBREL [Suspect]
     Indication: PRODUCT USED FOR UNKNOWN INDICATION
     Dosage: 25 mg, 2 times/wk
     Route: 058
  2. AMBIEN [Concomitant]
     Dosage: 5 mg, UNK
  3. VITAMIN B 12 [Concomitant]
  4. VITAMIN D /00107901/ [Concomitant]

REACTIONS (2)
  - Feeling cold [Unknown]
  - Platelet count decreased [Not Recovered/Not Resolved]
